FAERS Safety Report 11248717 (Version 1)
Quarter: 2015Q3

REPORT INFORMATION
  Report Type: Spontaneous
  Country: US (occurrence: US)
  Receive Date: 20150708
  Receipt Date: 20150708
  Transmission Date: 20151125
  Serious: No
  Sender: FDA-Public Use
  Company Number: US-ELI_LILLY_AND_COMPANY-US201005003619

PATIENT
  Sex: Female

DRUGS (4)
  1. PROZAC [Suspect]
     Active Substance: FLUOXETINE HYDROCHLORIDE
  2. PROZAC [Suspect]
     Active Substance: FLUOXETINE HYDROCHLORIDE
     Indication: WEIGHT DECREASED
  3. PAXIL [Concomitant]
     Active Substance: PAROXETINE HYDROCHLORIDE
  4. FLUOXETINE HYDROCHLORIDE. [Suspect]
     Active Substance: FLUOXETINE HYDROCHLORIDE

REACTIONS (9)
  - Nightmare [Recovered/Resolved]
  - Off label use [Not Recovered/Not Resolved]
  - Depression [Recovered/Resolved]
  - Cerebral disorder [Unknown]
  - Anxiety [Recovered/Resolved]
  - Drug dose omission [Recovered/Resolved]
  - Asthenia [Recovered/Resolved]
  - Fear [Recovered/Resolved]
  - Drug ineffective [Recovered/Resolved]
